FAERS Safety Report 6689746-2 (Version None)
Quarter: 2010Q2

REPORT INFORMATION
  Report Type: 
  Country: None (occurrence: None)
  Receive Date: 20100421
  Receipt Date: 20100414
  Transmission Date: 20101027
  Serious: Yes (Life-Threatening, Other)
  Sender: FDA-Public Use
  Company Number: JP-BAYER-200913528BYL

PATIENT
  Age: 67 Year
  Sex: Female
  Weight: 54 kg

DRUGS (6)
  1. NEXAVAR [Suspect]
     Indication: HEPATIC NEOPLASM MALIGNANT
     Dosage: TOTAL DAILY DOSE: 800 MG  UNIT DOSE: 200 MG
     Route: 048
     Dates: start: 20090728, end: 20090824
  2. FOSAMAC 35MG [Concomitant]
     Dosage: TOTAL DAILY DOSE: 35 MG  UNIT DOSE: 35 MG
     Route: 048
     Dates: end: 20090825
  3. GLAKAY [Concomitant]
     Dosage: UNIT DOSE: 15 MG
     Route: 048
     Dates: end: 20090825
  4. LIVACT [Concomitant]
     Dosage: UNIT DOSE: 4.15 G
     Route: 048
     Dates: end: 20090825
  5. URSO 250 [Concomitant]
     Dosage: UNIT DOSE: 100 MG
     Route: 048
     Dates: end: 20090825
  6. BARACLUDE [Concomitant]
     Dosage: UNIT DOSE: 0.5 MG
     Route: 048
     Dates: end: 20090825

REACTIONS (4)
  - CHOLECYSTITIS ACUTE [None]
  - DISSEMINATED INTRAVASCULAR COAGULATION [None]
  - HYPERTENSION [None]
  - PALMAR-PLANTAR ERYTHRODYSAESTHESIA SYNDROME [None]
